FAERS Safety Report 6554538-1 (Version None)
Quarter: 2010Q1

REPORT INFORMATION
  Report Type: 
  Country: None (occurrence: None)
  Receive Date: 20100127
  Receipt Date: 20100119
  Transmission Date: 20100710
  Serious: Yes (Hospitalization, Other)
  Sender: FDA-Public Use
  Company Number: PHHO2009DE02320

PATIENT
  Sex: Male
  Weight: 114 kg

DRUGS (12)
  1. STI571/CGP57148B T35717+CAPS [Suspect]
     Indication: PROSTATE CANCER
     Dosage: 400 MG, QD
     Route: 048
     Dates: start: 20081009, end: 20090209
  2. ZOMETA [Concomitant]
  3. ACTUSS LINCTUS [Concomitant]
  4. OROSTAT [Concomitant]
  5. FLUDROCORTISONE [Concomitant]
  6. ASPIRIN [Concomitant]
  7. ARCOXIA [Concomitant]
  8. TRAMADOL HCL [Concomitant]
  9. SANDOCAL [Concomitant]
  10. OVOSTAT [Concomitant]
  11. ACTOS [Concomitant]
  12. FORTECORTIN [Concomitant]

REACTIONS (4)
  - CHRONIC FATIGUE SYNDROME [None]
  - FATIGUE [None]
  - HAEMOGLOBIN DECREASED [None]
  - VERTIGO [None]
